FAERS Safety Report 14602069 (Version 2)
Quarter: 2018Q2

REPORT INFORMATION
  Report Type: Spontaneous
  Country: US (occurrence: US)
  Receive Date: 20180306
  Receipt Date: 20180409
  Transmission Date: 20180711
  Serious: Yes (Hospitalization)
  Sender: FDA-Public Use
  Company Number: US-ORPHAN EUROPE-2043017

PATIENT
  Age: 24 Month
  Sex: Female

DRUGS (1)
  1. CYSTADANE [Suspect]
     Active Substance: BETAINE
     Indication: CYSTATHIONINE BETA-SYNTHASE DEFICIENCY
     Route: 065

REACTIONS (7)
  - Blood homocysteine increased [Unknown]
  - CSF protein decreased [Unknown]
  - Treatment noncompliance [Unknown]
  - Lumbar puncture abnormal [Unknown]
  - CSF glucose increased [Unknown]
  - Brain oedema [Unknown]
  - Hypermethioninaemia [Unknown]
